FAERS Safety Report 8167410-0 (Version None)
Quarter: 2012Q1

REPORT INFORMATION
  Report Type: 
  Country: None (occurrence: None)
  Receive Date: 20120227
  Receipt Date: 20120217
  Transmission Date: 20120608
  Serious: Yes (Hospitalization)
  Sender: FDA-Public Use
  Company Number: FR-ELI_LILLY_AND_COMPANY-FR201202004996

PATIENT
  Age: 48 Year
  Sex: Female

DRUGS (1)
  1. GEMZAR [Suspect]
     Indication: BREAST CANCER IN SITU
     Dosage: UNK UNK, UNKNOWN
     Route: 042
     Dates: start: 20111116

REACTIONS (7)
  - DYSKINESIA [None]
  - DYSPNOEA [None]
  - EXPRESSIVE LANGUAGE DISORDER [None]
  - HYPOTONIA [None]
  - THROMBOCYTOPENIA [None]
  - PRESYNCOPE [None]
  - COUGH [None]
